FAERS Safety Report 26125605 (Version 1)
Quarter: 2025Q4

REPORT INFORMATION
  Report Type: Report from Study
  Country: CN (occurrence: CN)
  Receive Date: 20251205
  Receipt Date: 20251205
  Transmission Date: 20260118
  Serious: Yes (Hospitalization, Other)
  Sender: RANBAXY
  Company Number: CN-SUN PHARMACEUTICAL INDUSTRIES LTD-2025R1-539978

PATIENT
  Age: 73 Year
  Sex: Male

DRUGS (3)
  1. RIVAROXABAN [Suspect]
     Active Substance: RIVAROXABAN
     Indication: Thrombosis
     Dosage: UNK
     Route: 048
  2. DABIGATRAN [Suspect]
     Active Substance: DABIGATRAN
     Indication: Thrombosis
     Dosage: UNK
     Route: 048
  3. WARFARIN [Suspect]
     Active Substance: WARFARIN
     Indication: Thrombosis
     Dosage: UNK
     Route: 048

REACTIONS (1)
  - Treatment failure [Unknown]
